FAERS Safety Report 11162940 (Version 1)
Quarter: 2015Q2

REPORT INFORMATION
  Report Type: Spontaneous
  Country: US (occurrence: US)
  Receive Date: 20150604
  Receipt Date: 20150604
  Transmission Date: 20150821
  Serious: No
  Sender: FDA-Public Use
  Company Number: US-SA-2015SA021376

PATIENT
  Sex: Female

DRUGS (2)
  1. SOLOSTAR [Concomitant]
     Active Substance: DEVICE
  2. LANTUS SOLOSTAR [Suspect]
     Active Substance: INSULIN GLARGINE
     Indication: DIABETES MELLITUS
     Dosage: DOSE: 40/30 (UNSPECIFIED UNITS) AM/PM
     Route: 065

REACTIONS (4)
  - Liquid product physical issue [Unknown]
  - Drug administration error [Unknown]
  - Malaise [Unknown]
  - Application site pain [Unknown]
